FAERS Safety Report 7685554-4 (Version None)
Quarter: 2011Q3

REPORT INFORMATION
  Report Type: 
  Country: None (occurrence: None)
  Receive Date: 20110816
  Receipt Date: 20110811
  Transmission Date: 20111222
  Serious: Yes (Other)
  Sender: FDA-Public Use
  Company Number: IN-ABBOTT-11P-078-0845744-00

PATIENT
  Age: 82 Year
  Sex: Male

DRUGS (6)
  1. OLANZAPINE [Suspect]
     Dosage: AT BEDTIME
  2. OLANZAPINE [Suspect]
     Indication: BIPOLAR DISORDER
     Dosage: AT BEDTIME
  3. LORAZEPAM [Concomitant]
     Indication: INSOMNIA
     Dosage: AT BEDTIME
  4. VALPROATE SODIUM [Suspect]
     Indication: BIPOLAR DISORDER
     Dosage: AT BEDTIME
  5. LORAZEPAM [Concomitant]
  6. ALL OTHER THERAPEUTIC PRODUCTS [Concomitant]
     Indication: PRODUCT USED FOR UNKNOWN INDICATION

REACTIONS (4)
  - HALLUCINATION [None]
  - SLEEP DISORDER [None]
  - DELIRIUM [None]
  - DISORIENTATION [None]
